FAERS Safety Report 9561451 (Version 1)
Quarter: 2013Q3

REPORT INFORMATION
  Report Type: Spontaneous
  Country: US (occurrence: US)
  Receive Date: 20130927
  Receipt Date: 20130927
  Transmission Date: 20140515
  Serious: No
  Sender: FDA-Public Use
  Company Number: US-BIOGENIDEC-2013BI060476

PATIENT
  Age: 44 Year
  Sex: Female

DRUGS (9)
  1. TECFIDERA [Suspect]
     Indication: MULTIPLE SCLEROSIS
     Route: 048
     Dates: start: 20130609
  2. BACLOFEN [Concomitant]
  3. CALCIUM [Concomitant]
  4. VITAMIN D [Concomitant]
  5. AMPYRA [Concomitant]
  6. IRON [Concomitant]
  7. OXYBUTYNIN [Concomitant]
  8. GABAPENTIN [Concomitant]
  9. PERCOCET [Concomitant]

REACTIONS (1)
  - Nausea [Recovered/Resolved]
